FAERS Safety Report 5140824-9 (Version None)
Quarter: 2006Q4

REPORT INFORMATION
  Report Type: 
  Country: None (occurrence: None)
  Receive Date: 20061026
  Receipt Date: 20061013
  Transmission Date: 20070319
  Serious: Yes (Other)
  Sender: FDA-Public Use
  Company Number: 2006128869

PATIENT
  Sex: Male

DRUGS (1)
  1. SILDENAFIL CITRATE [Suspect]
     Dosage: ORAL
     Route: 048

REACTIONS (3)
  - COORDINATION ABNORMAL [None]
  - DIZZINESS [None]
  - HYPOAESTHESIA [None]
